FAERS Safety Report 7526021-8 (Version None)
Quarter: 2011Q2

REPORT INFORMATION
  Report Type: 
  Country: None (occurrence: None)
  Receive Date: 20110606
  Receipt Date: 20110602
  Transmission Date: 20111010
  Serious: Yes (Life-Threatening)
  Sender: FDA-Public Use
  Company Number: AU-ASTRAZENECA-2011SE33842

PATIENT
  Age: 49 Year
  Sex: Female

DRUGS (2)
  1. PROPOFOL [Suspect]
     Route: 042
     Dates: start: 20101202, end: 20101202
  2. FENTANYL [Suspect]
     Route: 065
     Dates: start: 20101202

REACTIONS (2)
  - TREMOR [None]
  - CONVULSION [None]
